FAERS Safety Report 7573392-2 (Version None)
Quarter: 2011Q2

REPORT INFORMATION
  Report Type: 
  Country: None (occurrence: None)
  Receive Date: 20110627
  Receipt Date: 20110623
  Transmission Date: 20111010
  Serious: Yes (Death)
  Sender: FDA-Public Use
  Company Number: PHHY2011CZ52180

PATIENT
  Sex: Female

DRUGS (3)
  1. ANODYNE [Concomitant]
  2. ZOMETA [Suspect]
     Dosage: UNK
     Dates: start: 20070801
  3. NSAID'S [Concomitant]
     Dosage: UNK

REACTIONS (3)
  - NEOPLASM PROGRESSION [None]
  - NEOPLASM MALIGNANT [None]
  - METASTASES TO BONE [None]
